FAERS Safety Report 10237674 (Version 1)
Quarter: 2014Q2

REPORT INFORMATION
  Report Type: Spontaneous
  Country: CA (occurrence: CA)
  Receive Date: 20140616
  Receipt Date: 20140616
  Transmission Date: 20141212
  Serious: Yes (Other)
  Sender: FDA-Public Use
  Company Number: CA-AMGEN-CANSP2014044085

PATIENT
  Age: 80 Year
  Sex: Male

DRUGS (11)
  1. ENBREL [Suspect]
     Indication: RHEUMATOID ARTHRITIS
     Dosage: 50 MG, UNK
     Route: 065
     Dates: start: 20121114
  2. MTX                                /00113801/ [Concomitant]
     Dosage: 10 MG, QWK
     Route: 065
  3. PLAQUENIL                          /00072602/ [Concomitant]
     Dosage: INTAKE IN HALF
     Route: 065
  4. PREDNISOLONE [Concomitant]
     Dosage: UNK
     Route: 065
  5. VALACYCLOVIR [Concomitant]
     Dosage: UNK
     Route: 065
  6. FERROUS SULFATE [Concomitant]
     Dosage: UNK
     Route: 065
  7. B12                                /00056201/ [Concomitant]
     Dosage: UNK
     Route: 065
  8. FOLIC ACID [Concomitant]
     Dosage: UNK
     Route: 065
  9. PANTOPRAZOLE [Concomitant]
     Dosage: UNK
  10. CARBOCAL [Concomitant]
     Dosage: UNK
  11. CELEBREX [Concomitant]
     Dosage: UNK

REACTIONS (2)
  - Renal impairment [Unknown]
  - Anaemia [Recovered/Resolved]
